FAERS Safety Report 4654427-3 (Version None)
Quarter: 2005Q2

REPORT INFORMATION
  Report Type: 
  Country: None (occurrence: None)
  Receive Date: 20050505
  Receipt Date: 20050505
  Transmission Date: 20051028
  Serious: Yes (Death, Other)
  Sender: FDA-Public Use
  Company Number: None

PATIENT
  Sex: Female
  Weight: 87.6 kg

DRUGS (3)
  1. ALLOGENEIC BLOOD STEM CELL TISSUE [Suspect]
     Dosage: SEE IMAGE
     Route: 042
     Dates: start: 20040413
  2. CYCLOPHOSPHAMIDE [Concomitant]
  3. FLUDARABINE PHOSPHATE [Concomitant]

REACTIONS (3)
  - GRAFT VERSUS HOST DISEASE [None]
  - MALIGNANT NEOPLASM PROGRESSION [None]
  - METASTASES TO LUNG [None]
